FAERS Safety Report 16945905 (Version 2)
Quarter: 2020Q2

REPORT INFORMATION
  Report Type: Spontaneous
  Country: US (occurrence: US)
  Receive Date: 20191022
  Receipt Date: 20200611
  Transmission Date: 20200713
  Serious: Yes (Other)
  Sender: FDA-Public Use
  Company Number: US-BRACCO-2019US05240

PATIENT
  Sex: Female

DRUGS (9)
  1. GADAVIST [Suspect]
     Active Substance: GADOBUTROL
     Indication: MAGNETIC RESONANCE IMAGING
     Dosage: 5 ML, SINGLE
     Dates: start: 20160616, end: 20160616
  2. MULTIHANCE [Suspect]
     Active Substance: GADOBENATE DIMEGLUMINE
     Indication: MAGNETIC RESONANCE IMAGING
     Dosage: 12 ML, SINGLE
     Route: 042
     Dates: start: 20150611, end: 20150611
  3. GADAVIST [Suspect]
     Active Substance: GADOBUTROL
     Indication: MAGNETIC RESONANCE IMAGING
     Dosage: 5 ML, SINGLE
     Dates: start: 20160527, end: 20160527
  4. GADAVIST [Suspect]
     Active Substance: GADOBUTROL
     Indication: MAGNETIC RESONANCE IMAGING
     Dosage: 6 ML, SINGLE
     Dates: start: 20170411, end: 20170411
  5. MULTIHANCE [Suspect]
     Active Substance: GADOBENATE DIMEGLUMINE
     Indication: MAGNETIC RESONANCE IMAGING SPINAL
     Dosage: 10 ML, SINGLE
     Dates: start: 20160916, end: 20160916
  6. GADAVIST [Suspect]
     Active Substance: GADOBUTROL
     Indication: MAGNETIC RESONANCE IMAGING BRAIN
     Dosage: 5.5 ML
     Dates: start: 20160712, end: 20160712
  7. GADAVIST [Suspect]
     Active Substance: GADOBUTROL
     Indication: MAGNETIC RESONANCE IMAGING
     Dosage: 5.5 ML, SINGLE
     Dates: start: 20161206, end: 20161206
  8. MULTIHANCE [Suspect]
     Active Substance: GADOBENATE DIMEGLUMINE
     Indication: MAGNETIC RESONANCE IMAGING
     Dosage: 10 ML, SINGLE
     Dates: start: 20160904, end: 20160904
  9. GADAVIST [Suspect]
     Active Substance: GADOBUTROL
     Indication: MAGNETIC RESONANCE IMAGING SPINAL
     Dosage: 7 ML, SINGLE
     Dates: start: 20190618, end: 20190618

REACTIONS (10)
  - Hair metal test abnormal [Not Recovered/Not Resolved]
  - Abdominal distension [Not Recovered/Not Resolved]
  - Muscle contractions involuntary [Not Recovered/Not Resolved]
  - Urine analysis abnormal [Not Recovered/Not Resolved]
  - Arthralgia [Not Recovered/Not Resolved]
  - Pain in extremity [Not Recovered/Not Resolved]
  - Constipation [Not Recovered/Not Resolved]
  - Erythema [Not Recovered/Not Resolved]
  - Blood test abnormal [Not Recovered/Not Resolved]
  - Fatigue [Not Recovered/Not Resolved]
